FAERS Safety Report 20539711 (Version 1)
Quarter: 2022Q1

REPORT INFORMATION
  Report Type: Spontaneous
  Country: US (occurrence: None)
  Receive Date: 20220302
  Receipt Date: 20220302
  Transmission Date: 20220423
  Serious: Yes (Hospitalization)
  Sender: FDA-Public Use
  Company Number: None

PATIENT
  Sex: Male

DRUGS (13)
  1. STELARA [Suspect]
     Active Substance: USTEKINUMAB
     Indication: Crohn^s disease
     Dosage: OTHER FREQUENCY : EVERY 28 DAYS;?
     Route: 058
     Dates: start: 20210625
  2. STELARA [Suspect]
     Active Substance: USTEKINUMAB
     Indication: Rectal haemorrhage
     Dosage: OTHER FREQUENCY : EVERY 28 DAYS;?
     Route: 058
  3. ATROPINE SULFATE\DIPHENOXYLATE [Concomitant]
     Active Substance: ATROPINE SULFATE\DIPHENOXYLATE
  4. DYCLONINE POW [Concomitant]
  5. KEPPRA SOL [Concomitant]
  6. LISINOPRIL [Concomitant]
     Active Substance: LISINOPRIL
  7. METOPROLOL POW TARTRATE [Concomitant]
  8. MIRTAZAPINE [Concomitant]
     Active Substance: MIRTAZAPINE
  9. MODERNA VAC INJ COVID-19 [Concomitant]
  10. NYSTATIN [Concomitant]
     Active Substance: NYSTATIN
  11. PEPCID CHW [Concomitant]
  12. RIFAXIMIN POW [Concomitant]
  13. VITAMIN D3 [Concomitant]
     Active Substance: CHOLECALCIFEROL

REACTIONS (3)
  - Overgrowth bacterial [None]
  - Gastrointestinal pain [None]
  - Haematochezia [None]
